FAERS Safety Report 4343894-0 (Version None)
Quarter: 2004Q2

REPORT INFORMATION
  Report Type: 
  Country: None (occurrence: None)
  Receive Date: 20040421
  Receipt Date: 20040421
  Transmission Date: 20050107
  Serious: Yes (Hospitalization)
  Sender: FDA-Public Use
  Company Number: None

PATIENT
  Age: 69 Year
  Sex: Male
  Weight: 74.4 kg

DRUGS (8)
  1. DOLOBID [Suspect]
     Indication: TOOTH INFECTION
     Dosage: 500 MG BID
  2. ADVIL [Suspect]
     Dosage: LARGE AMTS PER PT
  3. CARDIZEM [Concomitant]
  4. ACTOS [Concomitant]
  5. LIPITOR [Concomitant]
  6. PRINIVIL [Concomitant]
  7. PAXIL [Concomitant]
  8. WELLBUTRIN [Concomitant]

REACTIONS (7)
  - ANOREXIA [None]
  - ASTHENIA [None]
  - BLOOD CREATININE ABNORMAL [None]
  - DEHYDRATION [None]
  - DIARRHOEA [None]
  - DIZZINESS [None]
  - WEIGHT DECREASED [None]
